FAERS Safety Report 4293663-5 (Version None)
Quarter: 2004Q1

REPORT INFORMATION
  Report Type: 
  Country: None (occurrence: None)
  Receive Date: 20040212
  Receipt Date: 20040205
  Transmission Date: 20041129
  Serious: Yes (Other)
  Sender: FDA-Public Use
  Company Number: PHEH2004US01604

PATIENT
  Age: 44 Year
  Sex: Female

DRUGS (4)
  1. CAFERGOT [Suspect]
     Indication: HEADACHE
     Dosage: UNK, UNK
     Route: 048
     Dates: start: 20040204, end: 20040204
  2. ZOLOFT [Concomitant]
  3. XANAX [Concomitant]
  4. AMITRIPTYLINE HYDROCHLORIDE [Concomitant]

REACTIONS (1)
  - LOSS OF CONSCIOUSNESS [None]
